FAERS Safety Report 25410956 (Version 1)
Quarter: 2025Q2

REPORT INFORMATION
  Report Type: Spontaneous
  Country: US (occurrence: US)
  Receive Date: 20250609
  Receipt Date: 20250609
  Transmission Date: 20250716
  Serious: No
  Sender: Steriscience PTE
  Company Number: US-STERISCIENCE B.V.-2025-ST-000104

PATIENT
  Age: 53 Year
  Sex: Male

DRUGS (16)
  1. ONDANSETRON [Suspect]
     Active Substance: ONDANSETRON
     Indication: Nausea
     Route: 065
  2. ONDANSETRON [Suspect]
     Active Substance: ONDANSETRON
     Indication: Abdominal pain
  3. ONDANSETRON [Suspect]
     Active Substance: ONDANSETRON
     Indication: Vomiting
  4. ONDANSETRON [Suspect]
     Active Substance: ONDANSETRON
     Indication: Diarrhoea
  5. NORTRIPTYLINE [Suspect]
     Active Substance: NORTRIPTYLINE
     Indication: Abdominal pain
     Route: 065
  6. NORTRIPTYLINE [Suspect]
     Active Substance: NORTRIPTYLINE
     Indication: Vomiting
  7. NORTRIPTYLINE [Suspect]
     Active Substance: NORTRIPTYLINE
     Indication: Nausea
  8. NORTRIPTYLINE [Suspect]
     Active Substance: NORTRIPTYLINE
     Indication: Diarrhoea
  9. LOPERAMIDE [Suspect]
     Active Substance: LOPERAMIDE
     Indication: Abdominal pain
     Route: 065
  10. LOPERAMIDE [Suspect]
     Active Substance: LOPERAMIDE
     Indication: Nausea
  11. LOPERAMIDE [Suspect]
     Active Substance: LOPERAMIDE
     Indication: Vomiting
  12. LOPERAMIDE [Suspect]
     Active Substance: LOPERAMIDE
     Indication: Diarrhoea
  13. HYOSCYAMINE [Suspect]
     Active Substance: HYOSCYAMINE
     Indication: Diarrhoea
     Route: 065
  14. HYOSCYAMINE [Suspect]
     Active Substance: HYOSCYAMINE
     Indication: Vomiting
  15. HYOSCYAMINE [Suspect]
     Active Substance: HYOSCYAMINE
     Indication: Nausea
  16. HYOSCYAMINE [Suspect]
     Active Substance: HYOSCYAMINE
     Indication: Abdominal pain

REACTIONS (2)
  - Treatment failure [Unknown]
  - Off label use [Unknown]
